FAERS Safety Report 5409278-9 (Version None)
Quarter: 2007Q3

REPORT INFORMATION
  Report Type: 
  Country: None (occurrence: None)
  Receive Date: 20070809
  Receipt Date: 20070802
  Transmission Date: 20080115
  Serious: Yes (Other)
  Sender: FDA-Public Use
  Company Number: PHBS2007JP12565

PATIENT
  Age: 63 Year
  Sex: Female

DRUGS (1)
  1. AREDIA [Suspect]
     Indication: METASTASES TO BONE
     Dosage: 45 MG, QMO

REACTIONS (4)
  - BONE DISORDER [None]
  - ORAL PAIN [None]
  - OSTEONECROSIS [None]
  - SOFT TISSUE INFLAMMATION [None]
